FAERS Safety Report 8190202-3 (Version None)
Quarter: 2012Q1

REPORT INFORMATION
  Report Type: 
  Country: None (occurrence: None)
  Receive Date: 20120307
  Receipt Date: 20120305
  Transmission Date: 20120608
  Serious: No
  Sender: FDA-Public Use
  Company Number: US-PFIZER INC-2011131004

PATIENT
  Sex: Female
  Weight: 77 kg

DRUGS (7)
  1. LIPITOR [Suspect]
     Indication: BLOOD CHOLESTEROL INCREASED
     Dosage: 10 MG, 1X/DAY
     Route: 048
     Dates: end: 20110101
  2. LIPITOR [Suspect]
     Dosage: 5 MG, 1X/DAY
     Route: 048
     Dates: start: 20110101
  3. TRILIPIX [Concomitant]
     Dosage: UNK
  4. PLAVIX [Concomitant]
     Dosage: 75 MG, 1X/DAY
  5. RAMIPRIL [Concomitant]
     Dosage: 10 MG, 2X/DAY
  6. SULFAMETHOXAZOLE [Concomitant]
     Indication: PROPHYLAXIS
     Dosage: UNK
  7. AMLODIPINE [Concomitant]
     Dosage: UNK

REACTIONS (1)
  - BODY HEIGHT DECREASED [None]
